FAERS Safety Report 7804909-8 (Version None)
Quarter: 2011Q4

REPORT INFORMATION
  Report Type: 
  Country: None (occurrence: None)
  Receive Date: 20111010
  Receipt Date: 20110928
  Transmission Date: 20120403
  Serious: Yes (Death, Other)
  Sender: FDA-Public Use
  Company Number: GB-BRISTOL-MYERS SQUIBB COMPANY-15843964

PATIENT
  Age: 82 Year
  Sex: Male

DRUGS (11)
  1. ISMN [Concomitant]
     Route: 048
  2. LEVETIRACETAM [Concomitant]
     Route: 048
  3. RAMIPRIL [Concomitant]
     Route: 048
  4. INDORAMIN [Concomitant]
     Route: 048
  5. METFORMIN HCL [Suspect]
     Route: 048
     Dates: start: 20110309
  6. AMOXICILLIN AND CLAVULANATE POTASSIUM [Concomitant]
     Indication: RENAL FAILURE
     Route: 042
  7. FUROSEMIDE [Concomitant]
     Route: 048
  8. SIMVASTATIN [Concomitant]
     Route: 048
  9. AMITRIPTYLINE HCL [Concomitant]
     Route: 048
  10. ASPIRIN [Concomitant]
     Route: 048
  11. LEVOTHYROXINE SODIUM [Concomitant]
     Route: 048

REACTIONS (9)
  - RENAL FAILURE [None]
  - DIARRHOEA [None]
  - ATRIOVENTRICULAR BLOCK FIRST DEGREE [None]
  - DEHYDRATION [None]
  - BRADYCARDIA [None]
  - VOMITING [None]
  - LACTIC ACIDOSIS [None]
  - PERIPHERAL COLDNESS [None]
  - UNRESPONSIVE TO STIMULI [None]
